FAERS Safety Report 9220647 (Version 1)
Quarter: 2013Q2

REPORT INFORMATION
  Report Type: Spontaneous
  Country: US (occurrence: None)
  Receive Date: 20130408
  Receipt Date: 20130408
  Transmission Date: 20140414
  Serious: No
  Sender: FDA-Public Use
  Company Number: DL2013-0082

PATIENT
  Age: 25 Year
  Sex: Female

DRUGS (3)
  1. MIFEPRISTONE [Suspect]
     Indication: ABORTION INDUCED
     Route: 048
     Dates: start: 20120912
  2. MISOPROSTOL [Suspect]
     Route: 002
     Dates: start: 20120913
  3. DOXYCYCLINE [Concomitant]

REACTIONS (5)
  - Influenza like illness [None]
  - Headache [None]
  - Pyrexia [None]
  - Chills [None]
  - Endometritis [None]
